FAERS Safety Report 24121988 (Version 1)
Quarter: 2024Q3

REPORT INFORMATION
  Report Type: Report from Study
  Country: US (occurrence: US)
  Receive Date: 20240722
  Receipt Date: 20240722
  Transmission Date: 20241017
  Serious: No
  Sender: INCYTE
  Company Number: US-INCYTE CORPORATION-2024IN006847

PATIENT

DRUGS (2)
  1. JAKAFI [Suspect]
     Active Substance: RUXOLITINIB
     Indication: Myelofibrosis
     Dosage: UNK, STOPPED
     Route: 065
  2. JAKAFI [Suspect]
     Active Substance: RUXOLITINIB
     Dosage: UNK, RESTARTED
     Route: 065

REACTIONS (10)
  - Night sweats [Unknown]
  - Fatigue [Unknown]
  - Hepatic enzyme increased [Unknown]
  - Brain fog [Unknown]
  - Renal disorder [Unknown]
  - Epistaxis [Unknown]
  - Infection [Unknown]
  - Cardiac disorder [Unknown]
  - Weight increased [Unknown]
  - Drug ineffective [Unknown]
